FAERS Safety Report 6669433-7 (Version None)
Quarter: 2010Q2

REPORT INFORMATION
  Report Type: 
  Country: None (occurrence: None)
  Receive Date: 20100406
  Receipt Date: 20100324
  Transmission Date: 20101027
  Serious: Yes (Other)
  Sender: FDA-Public Use
  Company Number: PHHY2010US16758

PATIENT
  Sex: Female

DRUGS (10)
  1. EXELON [Suspect]
     Dosage: 4.6 MG 2 PATCHES
     Route: 062
  2. ARICEPT [Suspect]
  3. SYNTHROID [Concomitant]
     Dosage: 0.75 MG
  4. DIOVAN [Concomitant]
     Dosage: 160 MG
  5. AMLODIPINE [Concomitant]
  6. METOPROLOL TARTRATE [Concomitant]
     Dosage: 50 MG
  7. FOSAMAX [Concomitant]
     Dosage: 70 MG
  8. VITAMINS [Concomitant]
  9. CALCIUM [Concomitant]
  10. CENTRUM SILVER [Concomitant]

REACTIONS (3)
  - DEPRESSION [None]
  - DRUG USE FOR UNKNOWN INDICATION [None]
  - MEDICATION ERROR [None]
